FAERS Safety Report 6278147-7 (Version None)
Quarter: 2009Q3

REPORT INFORMATION
  Report Type: 
  Country: None (occurrence: None)
  Receive Date: 20090722
  Receipt Date: 20071115
  Transmission Date: 20100115
  Serious: Yes (Hospitalization, Disabling)
  Sender: FDA-Public Use
  Company Number: US-ASTRAZENECA-2007UW16986

PATIENT
  Age: 42 Year
  Sex: Male
  Weight: 122.5 kg

DRUGS (29)
  1. SEROQUEL [Suspect]
     Indication: SLEEP DISORDER
     Dosage: 25-100 MG
     Route: 048
     Dates: start: 19970101, end: 19980101
  2. SEROQUEL [Suspect]
     Indication: ANXIETY
     Dosage: 25-100 MG
     Route: 048
     Dates: start: 19970101, end: 19980101
  3. SEROQUEL [Suspect]
     Indication: INSOMNIA
     Dosage: 25-100 MG
     Route: 048
     Dates: start: 19970101, end: 19980101
  4. SEROQUEL [Suspect]
     Route: 048
     Dates: start: 20050101
  5. SEROQUEL [Suspect]
     Route: 048
     Dates: start: 20050101
  6. SEROQUEL [Suspect]
     Route: 048
     Dates: start: 20050101
  7. SEROQUEL [Suspect]
     Route: 048
     Dates: start: 20030618
  8. SEROQUEL [Suspect]
     Route: 048
     Dates: start: 20030618
  9. SEROQUEL [Suspect]
     Route: 048
     Dates: start: 20030618
  10. LEXAPRO [Concomitant]
     Dates: start: 20050101
  11. LEXAPRO [Concomitant]
     Route: 048
  12. VALIUM [Concomitant]
     Dates: start: 19920101
  13. ACTOS [Concomitant]
     Indication: DIABETES MELLITUS
     Route: 048
  14. LORAZEPAM [Concomitant]
     Route: 048
  15. XANAX [Concomitant]
     Route: 048
  16. DARVOCET-N 100 [Concomitant]
     Dosage: 1-2 TAB EVERY 4 HOUR AS NEEDED
     Route: 048
  17. LOPRESSOR [Concomitant]
  18. PLAVIX [Concomitant]
     Route: 048
  19. ZESTRIL [Concomitant]
  20. RISPERDAL [Concomitant]
     Route: 048
  21. NEURONTIN [Concomitant]
     Route: 048
  22. LIPITOR [Concomitant]
     Route: 048
  23. MORPHIN [Concomitant]
     Dosage: 8 MG/ML 2-4 MG 4-6 HOUR AS NEEDED
     Route: 042
  24. NOVOLIN R [Concomitant]
     Dosage: SLIDING SCALE
     Route: 058
  25. NITROSTAT [Concomitant]
     Route: 060
  26. AMBIEN [Concomitant]
     Dosage: 5-10 MG AT BED TIME AS NEEDED
     Route: 048
  27. ZOFRAN [Concomitant]
     Dosage: 4 MG INTRAVENOUS EVERY 4-5 HOUR AS NEEDED FOR ANXIETY
     Route: 042
  28. LOVENOX [Concomitant]
     Route: 058
  29. WELLBUTRIN [Concomitant]
     Route: 048

REACTIONS (7)
  - ACUTE MYOCARDIAL INFARCTION [None]
  - ARTHRALGIA [None]
  - BLOOD CHOLESTEROL INCREASED [None]
  - DEHYDRATION [None]
  - DEPRESSION [None]
  - DIABETES MELLITUS [None]
  - MYOCARDIAL INFARCTION [None]
